FAERS Safety Report 6517736-9 (Version None)
Quarter: 2009Q4

REPORT INFORMATION
  Report Type: 
  Country: None (occurrence: None)
  Receive Date: 20091224
  Receipt Date: 20091210
  Transmission Date: 20100525
  Serious: Yes (Life-Threatening, Hospitalization)
  Sender: FDA-Public Use
  Company Number: DE-MILLENNIUM PHARMACEUTICALS, INC.-2009-05150

PATIENT

DRUGS (6)
  1. VELCADE [Suspect]
     Indication: MULTIPLE MYELOMA
     Dosage: 2.6 MG, UNK
     Route: 042
     Dates: start: 20090928, end: 20091029
  2. FORTECORTIN [Suspect]
     Indication: MULTIPLE MYELOMA
     Dosage: 40 MG, UNK
     Route: 048
     Dates: start: 20090928, end: 20091030
  3. GRANISETRON [Concomitant]
     Indication: PROPHYLAXIS OF NAUSEA AND VOMITING
     Dosage: 1 MG, UNK
     Route: 042
     Dates: start: 20090928
  4. RANITIDINE HCL [Concomitant]
     Indication: PROPHYLAXIS OF NAUSEA AND VOMITING
     Dosage: 300 MG, UNK
     Route: 048
     Dates: start: 20090928
  5. CEFPODOXIME PROXETIL [Concomitant]
     Indication: DIVERTICULITIS
     Dosage: 100 MG, UNK
     Route: 048
     Dates: start: 20091014, end: 20091019
  6. CIPROFLOXACIN [Concomitant]
     Indication: DIVERTICULITIS
     Dosage: 500 MG, UNK
     Route: 048
     Dates: start: 20091014, end: 20091019

REACTIONS (1)
  - DIVERTICULITIS [None]
